FAERS Safety Report 5051800-9 (Version None)
Quarter: 2006Q3

REPORT INFORMATION
  Report Type: 
  Country: None (occurrence: None)
  Receive Date: 20060712
  Receipt Date: 20060712
  Transmission Date: 20061208
  Serious: Yes (Other)
  Sender: FDA-Public Use
  Company Number: None

PATIENT
  Age: 49 Year
  Sex: Male
  Weight: 83.9 kg

DRUGS (1)
  1. OXYCODONE HCL [Suspect]
     Indication: PROCEDURAL PAIN
     Dosage: 5-10Q4HP,5-10Q4 HP, ORAL
     Route: 048
     Dates: start: 20060502, end: 20060504

REACTIONS (1)
  - RASH [None]
